FAERS Safety Report 22083081 (Version 1)
Quarter: 2023Q1

REPORT INFORMATION
  Report Type: Spontaneous
  Country: FR (occurrence: FR)
  Receive Date: 20230310
  Receipt Date: 20230310
  Transmission Date: 20230418
  Serious: Yes (Hospitalization, Other)
  Sender: FDA-Public Use
  Company Number: None

PATIENT
  Age: 71 Year
  Sex: Female
  Weight: 40 kg

DRUGS (2)
  1. YERVOY [Suspect]
     Active Substance: IPILIMUMAB
     Indication: Desmoplastic melanoma
     Route: 042
     Dates: start: 20220909, end: 20221021
  2. OPDIVO [Suspect]
     Active Substance: NIVOLUMAB
     Indication: Desmoplastic melanoma
     Dosage: 480MG
     Route: 042
     Dates: start: 20220909, end: 20221114

REACTIONS (3)
  - Colitis [Recovering/Resolving]
  - Large intestine perforation [Recovering/Resolving]
  - Diarrhoea haemorrhagic [Recovering/Resolving]

NARRATIVE: CASE EVENT DATE: 20221121
